FAERS Safety Report 5038842-4 (Version None)
Quarter: 2006Q2

REPORT INFORMATION
  Report Type: 
  Country: None (occurrence: None)
  Receive Date: 20060629
  Receipt Date: 20060621
  Transmission Date: 20061013
  Serious: Yes (Hospitalization)
  Sender: FDA-Public Use
  Company Number: 2006AP02916

PATIENT
  Age: 63 Year
  Sex: Male

DRUGS (7)
  1. CASODEX [Suspect]
     Indication: PROSTATE CANCER
     Route: 048
     Dates: end: 20060601
  2. ARICEPT [Suspect]
     Route: 048
  3. ALLOID [Concomitant]
     Route: 048
  4. GASTER [Concomitant]
     Route: 048
  5. NORVASC [Concomitant]
     Route: 048
  6. BUP-4 [Concomitant]
     Route: 048
  7. CARDENALIN [Concomitant]
     Route: 048

REACTIONS (2)
  - PLATELET COUNT DECREASED [None]
  - WHITE BLOOD CELL COUNT DECREASED [None]
